FAERS Safety Report 14360700 (Version 1)
Quarter: 2020Q3

REPORT INFORMATION
  Report Type: Spontaneous
  Country: ES (occurrence: ES)
  Receive Date: 20180106
  Receipt Date: 20180106
  Transmission Date: 20201105
  Serious: Yes (Hospitalization, Other)
  Sender: FDA-Public Use
  Company Number: ES-MYLANLABS-2018M1001427

PATIENT
  Age: 67 Year
  Sex: Male

DRUGS (19)
  1. MEDI4736 [Suspect]
     Active Substance: DURVALUMAB
     Dosage: 1500 MG, CYCLIC (ONCE IN 4 WEEKS)
     Route: 042
     Dates: start: 20170817, end: 20170817
  2. FUROSEMIDE. [Concomitant]
     Active Substance: FUROSEMIDE
     Indication: HYPERTENSION
     Dosage: 40 MG, QD
     Route: 048
  3. TREMELIMUMAB. [Suspect]
     Active Substance: TREMELIMUMAB
     Indication: SMALL CELL LUNG CANCER EXTENSIVE STAGE
     Dosage: 75 MG, CYCLIC (ONCE EVERY 4 WEEKS)
     Route: 042
     Dates: start: 20171013
  4. TREMELIMUMAB. [Suspect]
     Active Substance: TREMELIMUMAB
     Dosage: 75 MG, CYCLIC (ONCE EVERY 4 WEEKS)
     Route: 042
     Dates: start: 20170913
  5. OXYCODONE [Suspect]
     Active Substance: OXYCODONE
     Indication: PAIN
     Dosage: 10 MG, PRN
     Route: 048
     Dates: start: 20170913
  6. MEDI4736 [Suspect]
     Active Substance: DURVALUMAB
     Dosage: 1500 MG, UNK
     Route: 042
  7. MORPHINE [Suspect]
     Active Substance: MORPHINE
     Indication: PRODUCT USED FOR UNKNOWN INDICATION
     Dosage: UNK
  8. MEDI4736 [Suspect]
     Active Substance: DURVALUMAB
     Indication: SMALL CELL LUNG CANCER EXTENSIVE STAGE
     Dosage: 1500 MG
     Route: 042
     Dates: start: 20171013, end: 20171013
  9. TREMELIMUMAB. [Suspect]
     Active Substance: TREMELIMUMAB
     Dosage: 75 MG, CYCLIC (ONCE EVERY 4 WEEKS)
     Route: 042
     Dates: start: 20171122
  10. FENTANYL. [Concomitant]
     Active Substance: FENTANYL
     Indication: CANCER PAIN
     Dosage: 250 ?G, QW
     Route: 062
  11. FENTANYL. [Concomitant]
     Active Substance: FENTANYL
     Dosage: 100 ?G, PRN
     Route: 045
  12. BISOPROLOL [Concomitant]
     Active Substance: BISOPROLOL
     Indication: HYPERTENSION
     Dosage: 2.5 MG, QD
     Route: 048
  13. SIMVASTATIN. [Concomitant]
     Active Substance: SIMVASTATIN
     Indication: DYSLIPIDAEMIA
     Dosage: 20 MG, QD
     Route: 048
  14. MEDI4736 [Suspect]
     Active Substance: DURVALUMAB
     Dosage: 1500 MG, UNK
     Route: 042
  15. FENTANYL. [Suspect]
     Active Substance: FENTANYL
     Dosage: 100.0UG AS REQUIRED
     Route: 045
  16. TREMELIMUMAB. [Suspect]
     Active Substance: TREMELIMUMAB
     Dosage: 75 MG, CYCLIC (ONCE EVERY 4 WEEKS)
     Route: 042
     Dates: start: 20170817, end: 20170817
  17. PARACETAMOL [Concomitant]
     Active Substance: ACETAMINOPHEN
     Indication: CANCER PAIN
     Dosage: 1 G, 2X/DAY
     Route: 048
  18. ALLOPURINOL. [Concomitant]
     Active Substance: ALLOPURINOL
     Indication: HYPERURICAEMIA
     Dosage: 300 MG, QD
     Route: 048
  19. SPIRONOLACTONE. [Concomitant]
     Active Substance: SPIRONOLACTONE
     Indication: HYPERTENSION
     Dosage: 50 MG, QD
     Route: 048

REACTIONS (1)
  - Toxicity to various agents [Recovered/Resolved]

NARRATIVE: CASE EVENT DATE: 20171003
